FAERS Safety Report 13391579 (Version 1)
Quarter: 2017Q1

REPORT INFORMATION
  Report Type: Spontaneous
  Country: US (occurrence: US)
  Receive Date: 20170331
  Receipt Date: 20170331
  Transmission Date: 20170429
  Serious: Yes (Death, Hospitalization)
  Sender: FDA-Public Use
  Company Number: None

PATIENT
  Age: 45 Year
  Sex: Male
  Weight: 108.6 kg

DRUGS (9)
  1. WARFARIN [Suspect]
     Active Substance: WARFARIN
     Indication: ATRIAL FIBRILLATION
     Route: 048
  2. CLONIDINE HCL (CATAPRES) [Concomitant]
  3. AMIODARONE HCL [Concomitant]
     Active Substance: AMIODARONE HYDROCHLORIDE
  4. WARFARIN SODIUM (COUMADIN) [Concomitant]
  5. ATORVASTATIN CALCIUM. [Concomitant]
     Active Substance: ATORVASTATIN CALCIUM
  6. LABETALOL HCL [Concomitant]
     Active Substance: LABETALOL HYDROCHLORIDE
  7. AMLODIPINE [Concomitant]
     Active Substance: AMLODIPINE BESYLATE
  8. ASPIRIN. [Concomitant]
     Active Substance: ASPIRIN
  9. LISINOPRIL (ZESTRIL) [Concomitant]

REACTIONS (12)
  - Vomiting [None]
  - Somnolence [None]
  - Hydrocephalus [None]
  - Nausea [None]
  - Haematochezia [None]
  - Brain death [None]
  - Haematemesis [None]
  - International normalised ratio increased [None]
  - Respiratory arrest [None]
  - Headache [None]
  - Cerebral haemorrhage [None]
  - Blood urine present [None]

NARRATIVE: CASE EVENT DATE: 20161222
